FAERS Safety Report 7501669-5 (Version None)
Quarter: 2011Q2

REPORT INFORMATION
  Report Type: 
  Country: None (occurrence: None)
  Receive Date: 20110525
  Receipt Date: 20110517
  Transmission Date: 20111010
  Serious: Yes (Hospitalization, Other)
  Sender: FDA-Public Use
  Company Number: DE-BAYER-2011-025242

PATIENT
  Age: 72 Year
  Sex: Male
  Weight: 83.9 kg

DRUGS (1)
  1. AVELOX [Suspect]
     Indication: PNEUMONIA
     Dosage: UNK
     Route: 048
     Dates: start: 20110216, end: 20110226

REACTIONS (14)
  - HYPERSENSITIVITY [None]
  - RENAL FAILURE ACUTE [None]
  - LIPASE INCREASED [None]
  - THROMBOCYTOPENIA [None]
  - ANAEMIA [None]
  - PETECHIAE [None]
  - GASTROENTERITIS [None]
  - DIARRHOEA [None]
  - METABOLIC ACIDOSIS [None]
  - TONGUE DISCOLOURATION [None]
  - CHROMATURIA [None]
  - RASH [None]
  - COLECTOMY [None]
  - MUSCULOSKELETAL PAIN [None]
